FAERS Safety Report 11118365 (Version 2)
Quarter: 2015Q2

REPORT INFORMATION
  Report Type: Spontaneous
  Country: US (occurrence: US)
  Receive Date: 20150518
  Receipt Date: 20150518
  Transmission Date: 20150821
  Serious: No
  Sender: FDA-Public Use
  Company Number: US-ASTRAZENECA-2006BM15685

PATIENT
  Age: 67 Year
  Sex: Male
  Weight: 71.7 kg

DRUGS (7)
  1. GLIPIZIDE. [Concomitant]
     Active Substance: GLIPIZIDE
     Route: 048
     Dates: end: 20061002
  2. JANUVIA [Concomitant]
     Active Substance: SITAGLIPTIN PHOSPHATE
     Indication: DIABETES MELLITUS
  3. PRILOSEC [Suspect]
     Active Substance: OMEPRAZOLE MAGNESIUM
     Indication: DYSPEPSIA
     Route: 048
  4. ACTOPLUS MET [Concomitant]
     Active Substance: METFORMIN HYDROCHLORIDE\PIOGLITAZONE HYDROCHLORIDE
     Dosage: UNK
  5. BYETTA [Suspect]
     Active Substance: EXENATIDE
     Indication: TYPE 2 DIABETES MELLITUS
     Route: 058
     Dates: start: 20061001
  6. PRILOSEC [Suspect]
     Active Substance: OMEPRAZOLE MAGNESIUM
     Indication: GASTROOESOPHAGEAL REFLUX DISEASE
     Route: 048
  7. METFORMIN [Concomitant]
     Active Substance: METFORMIN HYDROCHLORIDE
     Indication: DIABETES MELLITUS

REACTIONS (7)
  - Nausea [Unknown]
  - Blood glucose decreased [Recovered/Resolved]
  - Arthralgia [Unknown]
  - Headache [Recovering/Resolving]
  - Blood glucose increased [Recovered/Resolved]
  - Pain in extremity [Unknown]
  - Limb discomfort [Unknown]

NARRATIVE: CASE EVENT DATE: 20061002
